FAERS Safety Report 7519393-1 (Version None)
Quarter: 2011Q2

REPORT INFORMATION
  Report Type: 
  Country: None (occurrence: None)
  Receive Date: 20110602
  Receipt Date: 20110526
  Transmission Date: 20111010
  Serious: Yes (Hospitalization)
  Sender: FDA-Public Use
  Company Number: US-PFIZER INC-2011115120

PATIENT
  Age: 19 Year
  Sex: Female
  Weight: 69.6 kg

DRUGS (2)
  1. MYLOTARG [Suspect]
     Indication: ACUTE PROMYELOCYTIC LEUKAEMIA
     Dosage: 9 MG/M2 DAY 1
     Dates: start: 20110520, end: 20110520
  2. TRETINOIN [Suspect]
     Indication: ACUTE PROMYELOCYTIC LEUKAEMIA
     Dosage: 45 MG/M2 Q12HR STARTING ON DAY 1
     Dates: start: 20110520, end: 20110526

REACTIONS (2)
  - HYPOXIA [None]
  - DYSPNOEA [None]
